FAERS Safety Report 5725829-9 (Version None)
Quarter: 2008Q2

REPORT INFORMATION
  Report Type: 
  Country: None (occurrence: None)
  Receive Date: 20080429
  Receipt Date: 20080410
  Transmission Date: 20081010
  Serious: No
  Sender: FDA-Public Use
  Company Number: 002#2#2008-00232

PATIENT
  Age: 58 Year
  Sex: Female
  Weight: 72.5755 kg

DRUGS (9)
  1. NEUPRO [Suspect]
     Indication: PARKINSON'S DISEASE
     Dosage: 2MG/24H, 1 IN 1 D, TRANSDERMAL ; 4MG/24H, 1 IN 1 D, TRANSDERMAL, 4MG/24H, 1 IN 2 D, TRANSDERMAL; 4MG
     Route: 062
     Dates: start: 20080101, end: 20080101
  2. NEUPRO [Suspect]
     Indication: PARKINSON'S DISEASE
     Dosage: 2MG/24H, 1 IN 1 D, TRANSDERMAL ; 4MG/24H, 1 IN 1 D, TRANSDERMAL, 4MG/24H, 1 IN 2 D, TRANSDERMAL; 4MG
     Route: 062
     Dates: start: 20080101, end: 20080307
  3. NEUPRO [Suspect]
     Indication: PARKINSON'S DISEASE
     Dosage: 2MG/24H, 1 IN 1 D, TRANSDERMAL ; 4MG/24H, 1 IN 1 D, TRANSDERMAL, 4MG/24H, 1 IN 2 D, TRANSDERMAL; 4MG
     Route: 062
     Dates: start: 20080327, end: 20080328
  4. NEUPRO [Suspect]
     Indication: PARKINSON'S DISEASE
     Dosage: 2MG/24H, 1 IN 1 D, TRANSDERMAL ; 4MG/24H, 1 IN 1 D, TRANSDERMAL, 4MG/24H, 1 IN 2 D, TRANSDERMAL; 4MG
     Route: 062
     Dates: start: 20080328
  5. ZOLOFT [Concomitant]
  6. XANAX [Concomitant]
  7. TOPAMAX [Concomitant]
  8. STALEVO 100 [Concomitant]
  9. SYNTHROID [Concomitant]

REACTIONS (10)
  - ABDOMINAL PAIN UPPER [None]
  - ANXIETY [None]
  - COLD SWEAT [None]
  - CONDITION AGGRAVATED [None]
  - DEVICE FAILURE [None]
  - HYPERHIDROSIS [None]
  - IMPAIRED DRIVING ABILITY [None]
  - INSOMNIA [None]
  - MUSCLE SPASMS [None]
  - PARANOIA [None]
